FAERS Safety Report 17265500 (Version 4)
Quarter: 2022Q3

REPORT INFORMATION
  Report Type: Spontaneous
  Country: DE (occurrence: DE)
  Receive Date: 20200114
  Receipt Date: 20220924
  Transmission Date: 20221027
  Serious: Yes (Death, Other)
  Sender: FDA-Public Use
  Company Number: DE-AMGEN-DEUSP2020003003

PATIENT

DRUGS (2)
  1. ROMIPLOSTIM [Suspect]
     Active Substance: ROMIPLOSTIM
     Indication: Thrombocytopenia
     Dosage: 750 MICROGRAM, QWK
     Route: 058
  2. ROMIPLOSTIM [Suspect]
     Active Substance: ROMIPLOSTIM
     Dosage: UNK (15 CYCLE UNTIL WEEK 16)
     Route: 058

REACTIONS (14)
  - Death [Fatal]
  - Cerebrovascular accident [Unknown]
  - Mucocutaneous haemorrhage [Unknown]
  - Acute myeloid leukaemia [Unknown]
  - Pulmonary embolism [Unknown]
  - Drug specific antibody [Unknown]
  - Varicella zoster virus infection [Unknown]
  - Disease progression [Unknown]
  - Blast cells present [Unknown]
  - Adverse event [Unknown]
  - Off label use [Unknown]
  - Gene mutation [Unknown]
  - Asthenia [Unknown]
  - Therapy non-responder [Unknown]
